FAERS Safety Report 6580783-5 (Version None)
Quarter: 2010Q1

REPORT INFORMATION
  Report Type: 
  Country: None (occurrence: None)
  Receive Date: 20100213
  Receipt Date: 20100201
  Transmission Date: 20100710
  Serious: Yes (Hospitalization)
  Sender: FDA-Public Use
  Company Number: US-ELI_LILLY_AND_COMPANY-US200910005235

PATIENT
  Sex: Female

DRUGS (15)
  1. FORTEO [Suspect]
     Dosage: 20 UG, DAILY (1/D)
     Route: 065
     Dates: start: 20091009, end: 20091001
  2. FORTEO [Suspect]
     Dosage: 20 UG, DAILY (1/D)
     Dates: start: 20091101
  3. IMDUR [Concomitant]
     Indication: CARDIAC DISORDER
     Dosage: 120 MG, DAILY (1/D)
     Route: 065
  4. ASPIRIN [Concomitant]
     Indication: CARDIAC DISORDER
     Dosage: 325 MG, DAILY (1/D)
     Route: 065
  5. LIPITOR [Concomitant]
     Indication: BLOOD CHOLESTEROL
     Dosage: 20 MG, DAILY (1/D)
     Route: 065
  6. MESTINON [Concomitant]
     Indication: MUSCULAR WEAKNESS
     Dosage: 60 MG, OTHER
     Route: 065
  7. STROVITE PLUS [Concomitant]
     Indication: VITAMIN SUPPLEMENTATION
     Dosage: UNK, DAILY (1/D)
     Route: 065
  8. MIRALAX [Concomitant]
     Dosage: 17 G, DAILY (1/D)
     Route: 065
  9. ASACOL [Concomitant]
     Indication: COLITIS
     Dosage: UNK, 2/D
     Route: 065
  10. PREVACID [Concomitant]
     Indication: REFLUX GASTRITIS
     Dosage: 30 MG, DAILY (1/D)
     Route: 065
  11. PREDNISONE [Concomitant]
     Dosage: 10 MG, DAILY (1/D)
     Route: 065
  12. TYLENOL (CAPLET) [Concomitant]
     Indication: HEADACHE
     Dosage: UNK, AS NEEDED
     Route: 065
  13. VITAMIN E /00110501/ [Concomitant]
     Dosage: UNK, DAILY (1/D)
     Route: 065
  14. CALCIUM 600 + D [Concomitant]
     Dosage: UNK, 2/D
     Route: 065
  15. VITAMIN C [Concomitant]
     Dosage: UNK, DAILY (1/D)
     Route: 065

REACTIONS (3)
  - DEHYDRATION [None]
  - DIVERTICULUM [None]
  - INFLAMMATORY BOWEL DISEASE [None]
